FAERS Safety Report 20294937 (Version 1)
Quarter: 2022Q1

REPORT INFORMATION
  Report Type: Spontaneous
  Country: US (occurrence: US)
  Receive Date: 20220104
  Receipt Date: 20220104
  Transmission Date: 20220423
  Serious: No
  Sender: FDA-Public Use
  Company Number: US-UNITED THERAPEUTICS-UNT-2021-026861

PATIENT
  Sex: Female

DRUGS (2)
  1. TYVASO [Suspect]
     Active Substance: TREPROSTINIL
     Indication: Pulmonary arterial hypertension
     Dosage: UNK
     Dates: start: 20180127
  2. TYVASO [Suspect]
     Active Substance: TREPROSTINIL
     Dosage: 120 ?G, TID

REACTIONS (4)
  - Erythema [Unknown]
  - Feeling hot [Unknown]
  - Dizziness [Unknown]
  - Off label use [Unknown]
